FAERS Safety Report 4865153-X (Version None)
Quarter: 2005Q4

REPORT INFORMATION
  Report Type: 
  Country: None (occurrence: None)
  Receive Date: 20051223
  Receipt Date: 20051219
  Transmission Date: 20060501
  Serious: Yes (Other)
  Sender: FDA-Public Use
  Company Number: AU-GLAXOSMITHKLINE-B0404458A

PATIENT
  Age: 18 Month
  Sex: Male
  Weight: 14 kg

DRUGS (1)
  1. CHILDREN'S PANADOL COLOURFREE SUSPENSION 1-5 YEARS [Suspect]
     Dosage: 100ML PER DAY
     Route: 048
     Dates: start: 20051219

REACTIONS (1)
  - ACCIDENTAL OVERDOSE [None]
